FAERS Safety Report 24986615 (Version 1)
Quarter: 2025Q1

REPORT INFORMATION
  Report Type: Spontaneous
  Country: US (occurrence: None)
  Receive Date: 20250214
  Receipt Date: 20250214
  Transmission Date: 20250408
  Serious: No
  Sender: FDA-CTU
  Company Number: None

PATIENT
  Age: 73 Year
  Sex: Female
  Weight: 83.25 kg

DRUGS (6)
  1. CHLORINE DIOXIDE [Suspect]
     Active Substance: CHLORINE DIOXIDE
     Indication: Dental plaque
     Dosage: OTHER QUANTITY : 3 PUMPS EACH PART;?FREQUENCY : TWICE A DAY;?OTHER ROUTE : MOUTH RINSE;?
     Route: 050
     Dates: start: 20241101
  2. LEVOTHYROXINE [Concomitant]
     Active Substance: LEVOTHYROXINE
  3. ROSUVASTATIN [Concomitant]
     Active Substance: ROSUVASTATIN
  4. LISINOPRIL [Concomitant]
     Active Substance: LISINOPRIL
  5. COENZYME Q10 [Concomitant]
     Active Substance: DIETARY SUPPLEMENT\UBIDECARENONE
  6. PreserVision Eye Vitamin [Concomitant]

REACTIONS (3)
  - Oral discomfort [None]
  - Oral discomfort [None]
  - Dry mouth [None]

NARRATIVE: CASE EVENT DATE: 20250209
